FAERS Safety Report 12449209 (Version 2)
Quarter: 2016Q2

REPORT INFORMATION
  Report Type: Report from Study
  Country: US (occurrence: US)
  Receive Date: 20160608
  Receipt Date: 20160630
  Transmission Date: 20160815
  Serious: Yes (Hospitalization)
  Sender: FDA-Public Use
  Company Number: US-ACTELION-A-NJ2016-137433

PATIENT
  Age: 66 Year
  Sex: Female

DRUGS (2)
  1. VENTAVIS [Suspect]
     Active Substance: ILOPROST
     Indication: PULMONARY HYPERTENSION
     Dosage: 5 MCG, 6X/DAY
     Route: 055
     Dates: start: 20120510
  2. OPSUMIT [Concomitant]
     Active Substance: MACITENTAN
     Indication: PULMONARY HYPERTENSION
     Route: 048

REACTIONS (3)
  - Hypoaesthesia oral [Unknown]
  - Transient ischaemic attack [Unknown]
  - Hypoaesthesia [Unknown]
